FAERS Safety Report 21584308 (Version 3)
Quarter: 2023Q2

REPORT INFORMATION
  Report Type: Spontaneous
  Country: US (occurrence: US)
  Receive Date: 20221111
  Receipt Date: 20230414
  Transmission Date: 20230721
  Serious: No
  Sender: FDA-Public Use
  Company Number: US-ABBVIE-4162844

PATIENT
  Age: 73 Year
  Sex: Female
  Weight: 52.163 kg

DRUGS (2)
  1. RINVOQ [Suspect]
     Active Substance: UPADACITINIB
     Indication: Colitis ulcerative
     Dosage: 45 MILLIGRAM DRUG ST DATE 2022
     Route: 048
  2. RINVOQ [Suspect]
     Active Substance: UPADACITINIB
     Indication: Colitis ulcerative
     Dosage: 30 MILLIGRAM
     Route: 048

REACTIONS (2)
  - Large intestine infection [Unknown]
  - Pseudopolyposis [Unknown]

NARRATIVE: CASE EVENT DATE: 20220710
